FAERS Safety Report 4282851-X (Version None)
Quarter: 2004Q1

REPORT INFORMATION
  Report Type: 
  Country: None (occurrence: None)
  Receive Date: 20040130
  Receipt Date: 20030620
  Transmission Date: 20041129
  Serious: No
  Sender: FDA-Public Use
  Company Number: US-BRISTOL-MYERS SQUIBB COMPANY-12307575

PATIENT
  Age: 61 Year
  Sex: Female

DRUGS (8)
  1. SERZONE [Suspect]
     Indication: DEPRESSION
     Dosage: STARTER PACK ^SMALL DOSE AND THEN INCREASES^,CURRENTLY 150MG AM, 200 MG IN PM(200MG TABLETS)
     Route: 048
     Dates: start: 20010301
  2. RITALIN [Concomitant]
  3. LEXAPRO [Concomitant]
  4. DESIPRAMINE HCL [Concomitant]
  5. WELLBUTRIN [Concomitant]
  6. PREMARIN [Concomitant]
  7. PROVERA [Concomitant]
  8. MULTI-VITAMIN [Concomitant]

REACTIONS (1)
  - BREAST DISCHARGE [None]
